FAERS Safety Report 22349177 (Version 1)
Quarter: 2023Q2

REPORT INFORMATION
  Report Type: Spontaneous
  Country: US (occurrence: None)
  Receive Date: 20230519
  Receipt Date: 20230519
  Transmission Date: 20230722
  Serious: Yes (Hospitalization)
  Sender: FDA-Public Use
  Company Number: None

PATIENT
  Age: 82 Year
  Sex: Female

DRUGS (5)
  1. CAPECITABINE [Suspect]
     Active Substance: CAPECITABINE
     Indication: Breast cancer
     Dosage: 2 TABLETS TWICE DAILY ORAL
     Route: 048
     Dates: end: 20230516
  2. CALCIUM [Concomitant]
  3. MAGNESIUM [Concomitant]
  4. PRESERVISION AREDS 2 + MLTIVIT [Concomitant]
  5. FASLODEX [Concomitant]
     Active Substance: FULVESTRANT

REACTIONS (1)
  - Hospice care [None]

NARRATIVE: CASE EVENT DATE: 20230516
